FAERS Safety Report 23774348 (Version 5)
Quarter: 2025Q3

REPORT INFORMATION
  Report Type: Spontaneous
  Country: JP (occurrence: JP)
  Receive Date: 20240423
  Receipt Date: 20250802
  Transmission Date: 20251021
  Serious: Yes (Hospitalization, Other)
  Sender: ALEXION PHARMACEUTICALS
  Company Number: 2024A089442

PATIENT
  Age: 64 Year
  Sex: Female
  Weight: 65 kg

DRUGS (24)
  1. LYNPARZA [Suspect]
     Active Substance: OLAPARIB
     Indication: Ovarian cancer recurrent
     Dosage: DOSE UNKNOWN
     Dates: start: 20180608, end: 20230915
  2. PACLITAXEL [Suspect]
     Active Substance: PACLITAXEL
     Indication: Ovarian cancer
     Route: 065
     Dates: start: 20080710, end: 20081023
  3. PACLITAXEL [Suspect]
     Active Substance: PACLITAXEL
     Indication: Ovarian cancer recurrent
     Route: 065
     Dates: start: 20101011, end: 20101227
  4. PACLITAXEL [Suspect]
     Active Substance: PACLITAXEL
     Route: 065
     Dates: start: 20121010, end: 20121121
  5. CARBOPLATIN [Suspect]
     Active Substance: CARBOPLATIN
     Indication: Ovarian cancer
     Route: 065
     Dates: start: 20080710, end: 20081023
  6. CARBOPLATIN [Suspect]
     Active Substance: CARBOPLATIN
     Route: 065
     Dates: start: 20101011, end: 20101227
  7. CARBOPLATIN [Suspect]
     Active Substance: CARBOPLATIN
     Route: 065
     Dates: start: 20121010, end: 20121121
  8. NEDAPLATIN [Suspect]
     Active Substance: NEDAPLATIN
     Indication: Ovarian cancer recurrent
     Route: 065
  9. NEDAPLATIN [Suspect]
     Active Substance: NEDAPLATIN
     Route: 065
     Dates: start: 20180115, end: 20180511
  10. METOCLOPRAMIDE [Concomitant]
     Active Substance: METOCLOPRAMIDE
     Dates: start: 20180608, end: 201807
  11. METOCLOPRAMIDE [Concomitant]
     Active Substance: METOCLOPRAMIDE
     Indication: Ovarian cancer recurrent
  12. Waplon [Concomitant]
     Dates: start: 20180608, end: 202004
  13. Waplon [Concomitant]
     Indication: Ovarian cancer recurrent
  14. LOXOPROFEN SODIUM [Concomitant]
     Active Substance: LOXOPROFEN SODIUM
     Dates: start: 20180720, end: 202009
  15. LOXOPROFEN SODIUM [Concomitant]
     Active Substance: LOXOPROFEN SODIUM
     Indication: Ovarian cancer recurrent
  16. REBAMIPIDE [Concomitant]
     Active Substance: REBAMIPIDE
     Dates: start: 20180720, end: 202009
  17. REBAMIPIDE [Concomitant]
     Active Substance: REBAMIPIDE
     Indication: Ovarian cancer recurrent
  18. Rinderon [Concomitant]
     Dates: start: 20180817, end: 202007
  19. CLARITIN [Concomitant]
     Active Substance: LORATADINE
     Indication: Seasonal allergy
     Dosage: 10 MILLIGRAM, QD
     Dates: start: 20190301, end: 20190315
  20. TRANEXAMIC ACID [Concomitant]
     Active Substance: TRANEXAMIC ACID
     Indication: Seasonal allergy
     Dosage: 250 MILLIGRAM, TID
     Dates: start: 20190301, end: 20190315
  21. TRANEXAMIC ACID [Concomitant]
     Active Substance: TRANEXAMIC ACID
     Indication: Seasonal allergy
  22. KETOPROFEN [Concomitant]
     Active Substance: KETOPROFEN
     Indication: Ovarian cancer recurrent
  23. CLARITIN REDITABS [Concomitant]
     Active Substance: LORATADINE
     Indication: Seasonal allergy
     Dates: start: 20190301, end: 20190315
  24. RINDERON VG [Concomitant]
     Active Substance: BETAMETHASONE VALERATE\GENTAMICIN SULFATE
     Indication: Ovarian cancer recurrent

REACTIONS (2)
  - Myelodysplastic syndrome [Not Recovered/Not Resolved]
  - Leukaemia [Not Recovered/Not Resolved]

NARRATIVE: CASE EVENT DATE: 20230916
